FAERS Safety Report 23469495 (Version 1)
Quarter: 2024Q1

REPORT INFORMATION
  Report Type: Spontaneous
  Country: FR (occurrence: FR)
  Receive Date: 20240202
  Receipt Date: 20240202
  Transmission Date: 20240410
  Serious: Yes (Other)
  Sender: FDA-Public Use
  Company Number: FR-ALCON LABORATORIES-ALC2024FR000760

PATIENT

DRUGS (2)
  1. ATROPINE [Suspect]
     Active Substance: ATROPINE\ATROPINE SULFATE
     Indication: Myopia
     Dosage: 1 DROP IN THE EVENING, I.E., 155 ?G/D OF ATROPINE
     Dates: start: 20230901, end: 20231212
  2. ATROPINE [Suspect]
     Active Substance: ATROPINE\ATROPINE SULFATE
     Indication: Product used for unknown indication
     Dosage: ATROPINE 0.05% EYE DROPS, HOSPITAL PREPARATION: 1 DROP/DAY
     Route: 047

REACTIONS (4)
  - Mydriasis [Recovered/Resolved]
  - Incorrect dose administered [Recovered/Resolved]
  - Product dispensing error [Recovered/Resolved]
  - Photophobia [Recovered/Resolved]

NARRATIVE: CASE EVENT DATE: 20230901
